FAERS Safety Report 20043683 (Version 2)
Quarter: 2021Q4

REPORT INFORMATION
  Report Type: Spontaneous
  Country: NL (occurrence: NL)
  Receive Date: 20211108
  Receipt Date: 20211227
  Transmission Date: 20220304
  Serious: Yes (Other)
  Sender: FDA-Public Use
  Company Number: NL-BEH-2021137644

PATIENT
  Sex: Female
  Weight: 3.82 kg

DRUGS (2)
  1. RHOPHYLAC [Suspect]
     Active Substance: HUMAN RHO(D) IMMUNE GLOBULIN
     Indication: Product used for unknown indication
     Dosage: UNK
     Route: 064
     Dates: start: 20210718, end: 20210718
  2. RHOPHYLAC [Suspect]
     Active Substance: HUMAN RHO(D) IMMUNE GLOBULIN
     Indication: Product used for unknown indication
     Dosage: UNK
     Route: 064
     Dates: start: 20210718, end: 20210718

REACTIONS (6)
  - Apgar score low [Unknown]
  - Maternal exposure during pregnancy [Unknown]
  - Expired product administered [Unknown]
  - Shoulder dystocia [Recovered/Resolved]
  - Maternal exposure during pregnancy [Recovered/Resolved]
  - Expired product administered [Recovered/Resolved]

NARRATIVE: CASE EVENT DATE: 20211001
